FAERS Safety Report 24776509 (Version 2)
Quarter: 2024Q4

REPORT INFORMATION
  Report Type: Spontaneous
  Country: US (occurrence: US)
  Receive Date: 20241226
  Receipt Date: 20241226
  Transmission Date: 20250115
  Serious: Yes (Other)
  Sender: ROCHE
  Company Number: US-ROCHE-10000162582

PATIENT
  Age: 82 Year
  Sex: Female

DRUGS (7)
  1. ESBRIET [Suspect]
     Active Substance: PIRFENIDONE
     Indication: Product used for unknown indication
     Route: 065
     Dates: start: 20240521
  2. ACETYLCYSTEINE [Concomitant]
     Active Substance: ACETYLCYSTEINE
     Route: 048
  3. ELIQUIS [Concomitant]
     Active Substance: APIXABAN
     Route: 048
  4. ESTRADIOL [Concomitant]
     Active Substance: ESTRADIOL
     Route: 067
     Dates: start: 20180918
  5. METOPROLOL SUCCINATE [Concomitant]
     Active Substance: METOPROLOL SUCCINATE
     Dates: start: 20241024, end: 20241223
  6. OMEPRAZOLE [Concomitant]
     Active Substance: OMEPRAZOLE
     Route: 048
  7. GEMTESA [Concomitant]
     Active Substance: VIBEGRON
     Route: 048
     Dates: start: 20221125

REACTIONS (7)
  - Dyspnoea [Unknown]
  - Cough [Unknown]
  - Chronic respiratory failure [Unknown]
  - Interstitial lung disease [Unknown]
  - Troponin abnormal [Unknown]
  - Diastolic dysfunction [Unknown]
  - Pulmonary embolism [Unknown]
